FAERS Safety Report 16441816 (Version 1)
Quarter: 2019Q2

REPORT INFORMATION
  Report Type: Report from Study
  Country: None (occurrence: US)
  Receive Date: 20190617
  Receipt Date: 20190617
  Transmission Date: 20190711
  Serious: No
  Sender: FDA-Public Use
  Company Number: US-US WORLDMEDS, LLC-USW201807-001132

PATIENT
  Age: 68 Year
  Sex: Male

DRUGS (5)
  1. ASA [Concomitant]
     Active Substance: ASPIRIN
     Dates: start: 201806
  2. AMIODARONE [Concomitant]
     Active Substance: AMIODARONE
     Dates: start: 201806
  3. SEROQUEL [Concomitant]
     Active Substance: QUETIAPINE FUMARATE
  4. APOKYN [Suspect]
     Active Substance: APOMORPHINE HYDROCHLORIDE
     Indication: PARKINSON^S DISEASE
     Route: 058
     Dates: start: 20170824, end: 20180608
  5. CARBIDOPA AND LEVODOPA [Concomitant]
     Active Substance: CARBIDOPA\LEVODOPA

REACTIONS (3)
  - Bronchitis [Recovering/Resolving]
  - Dyspnoea [Recovering/Resolving]
  - Atrial fibrillation [Recovering/Resolving]

NARRATIVE: CASE EVENT DATE: 20180608
